FAERS Safety Report 23273407 (Version 1)
Quarter: 2023Q4

REPORT INFORMATION
  Report Type: Spontaneous
  Country: DE (occurrence: DE)
  Receive Date: 20231207
  Receipt Date: 20231207
  Transmission Date: 20240110
  Serious: Yes (Disabling, Other)
  Sender: FDA-Public Use
  Company Number: DE-BAXTER-2020BAX019129

PATIENT
  Age: 33 Year
  Sex: Male
  Weight: 83 kg

DRUGS (16)
  1. ONDANSETRON [Suspect]
     Active Substance: ONDANSETRON
     Indication: Surgery
  2. MIVACURIUM [Suspect]
     Active Substance: MIVACURIUM
     Indication: Surgery
     Dosage: 14  MILLIGRAM?SOLUTION FOR INJECTION
  3. DEXAMETHASONE [Suspect]
     Active Substance: DEXAMETHASONE
     Indication: Surgery
  4. AMIKACIN SULFATE [Suspect]
     Active Substance: AMIKACIN SULFATE
     Indication: Product used for unknown indication
  5. PROPOFOL [Suspect]
     Active Substance: PROPOFOL
     Indication: Tonsillectomy
     Dosage: INJECTION
  6. PROPOFOL [Suspect]
     Active Substance: PROPOFOL
     Dosage: DEFINITION OF THE TIME INTERVAL UNIT: TOTAL?300 MILLIGRAM
     Dates: start: 20190820, end: 20190820
  7. DICLOFENAC [Suspect]
     Active Substance: DICLOFENAC
     Indication: Surgery
     Dosage: SUPPOSITORY
     Dates: end: 20190902
  8. HALDOL DECANOATE [Suspect]
     Active Substance: HALOPERIDOL DECANOATE
     Indication: Surgery
     Dosage: SOLUTION FOR INJECTION
  9. FENTANYL CITRATE [Suspect]
     Active Substance: FENTANYL CITRATE
     Indication: Surgery
     Dosage: 0.2 MILLIGRAM?SOLUTION FOR INJECTION
  10. PROCHLORPERAZINE [Suspect]
     Active Substance: PROCHLORPERAZINE
     Indication: Product used for unknown indication
  11. PIRITRAMIDE [Suspect]
     Active Substance: PIRITRAMIDE
     Indication: Surgery
     Dosage: SOLUTION FOR INJECTION
  12. SEVOFLURANE [Suspect]
     Active Substance: SEVOFLURANE
     Indication: Surgery
     Dosage: INHALATION SOLUTION
     Route: 065
  13. FENTANYL [Suspect]
     Active Substance: FENTANYL\FENTANYL CITRATE
     Indication: Product used for unknown indication
  14. HALOPERIDOL [Suspect]
     Active Substance: HALOPERIDOL
     Indication: Product used for unknown indication
  15. METAMIZOLE [Concomitant]
     Active Substance: METAMIZOLE
     Indication: Surgery
     Dosage: 2500 MG?SOLUTION FOR INJECTION
  16. DICLOFENAC [Concomitant]
     Active Substance: DICLOFENAC
     Indication: Surgery

REACTIONS (31)
  - Hyperventilation [Not Recovered/Not Resolved]
  - Dyspnoea [Not Recovered/Not Resolved]
  - Speech disorder [Not Recovered/Not Resolved]
  - Blood pressure measurement [Not Recovered/Not Resolved]
  - Chest discomfort [Not Recovered/Not Resolved]
  - Oropharyngeal discomfort [Not Recovered/Not Resolved]
  - Flatulence [Not Recovered/Not Resolved]
  - Heart rate increased [Not Recovered/Not Resolved]
  - Dizziness [Not Recovered/Not Resolved]
  - Oropharyngeal pain [Not Recovered/Not Resolved]
  - Somnolence [Not Recovered/Not Resolved]
  - Impaired work ability [Not Recovered/Not Resolved]
  - Visual impairment [Not Recovered/Not Resolved]
  - Vision blurred [Not Recovered/Not Resolved]
  - Asthenia [Not Recovered/Not Resolved]
  - Weight bearing difficulty [Not Recovered/Not Resolved]
  - Chest pain [Not Recovered/Not Resolved]
  - Cardiovascular disorder [Not Recovered/Not Resolved]
  - Performance status decreased [Not Recovered/Not Resolved]
  - General physical health deterioration [Not Recovered/Not Resolved]
  - Malaise [Unknown]
  - Hyperventilation [Unknown]
  - General physical condition abnormal [Unknown]
  - Dyspnoea [Unknown]
  - Dizziness [Unknown]
  - Chest discomfort [Unknown]
  - Tachycardia [Unknown]
  - Nausea [Unknown]
  - Asthenia [Unknown]
  - Off label use [Unknown]
  - Product use in unapproved indication [Unknown]

NARRATIVE: CASE EVENT DATE: 20190818
